FAERS Safety Report 9788048 (Version 1)
Quarter: 2013Q4

REPORT INFORMATION
  Report Type: Spontaneous
  Country: US (occurrence: None)
  Receive Date: 20131227
  Receipt Date: 20131227
  Transmission Date: 20140711
  Serious: Yes (Life-Threatening, Hospitalization)
  Sender: FDA-Public Use
  Company Number: None

PATIENT
  Age: 67 Year
  Sex: Female
  Weight: 32.66 kg

DRUGS (8)
  1. TIKOSYN [Suspect]
     Indication: ATRIAL FIBRILLATION
     Dosage: RECENT 10/3 0900?
     Route: 048
  2. LEVAQUIN [Suspect]
     Indication: ANTIBIOTIC THERAPY
     Dosage: 10/2 0200
     Route: 042
  3. ATENOLOL [Concomitant]
  4. ZOCOR [Concomitant]
  5. LISINOPRIL [Concomitant]
  6. ALENDRONATE [Concomitant]
  7. ASA [Concomitant]
  8. DONEPEZIL [Concomitant]

REACTIONS (5)
  - Toxicity to various agents [None]
  - Cardiac arrest [None]
  - Pulseless electrical activity [None]
  - Torsade de pointes [None]
  - Supraventricular tachycardia [None]
